FAERS Safety Report 6574390-8 (Version None)
Quarter: 2010Q1

REPORT INFORMATION
  Report Type: 
  Country: None (occurrence: None)
  Receive Date: 20100209
  Receipt Date: 20100203
  Transmission Date: 20100710
  Serious: Yes (Hospitalization)
  Sender: FDA-Public Use
  Company Number: US-BIOGENIDEC-2009BI041111

PATIENT
  Age: 58 Year
  Sex: Female

DRUGS (1)
  1. TYSABRI [Suspect]
     Indication: MULTIPLE SCLEROSIS
     Route: 042
     Dates: start: 20071023

REACTIONS (8)
  - AORTIC DISORDER [None]
  - APPARENT DEATH [None]
  - ARTERIAL DISORDER [None]
  - CHOLECYSTECTOMY [None]
  - HERNIA [None]
  - INFECTION [None]
  - VISUAL IMPAIRMENT [None]
  - WEIGHT DECREASED [None]
